FAERS Safety Report 9771837 (Version 2)
Quarter: 2013Q4

REPORT INFORMATION
  Report Type: Report from Study
  Country: JP (occurrence: JP)
  Receive Date: 20131219
  Receipt Date: 20131219
  Transmission Date: 20140711
  Serious: Yes (Other)
  Sender: FDA-Public Use
  Company Number: PHHY2012JP069537

PATIENT
  Age: 56 Year
  Sex: Female
  Weight: 51 kg

DRUGS (6)
  1. AFINITOR [Suspect]
     Indication: PANCREATIC NEUROENDOCRINE TUMOUR
     Dosage: 10 MG, DAILY
     Route: 048
     Dates: start: 20120107, end: 20120116
  2. AFINITOR [Suspect]
     Dosage: 5 MG, DAILY
     Route: 048
     Dates: start: 20120117, end: 20120124
  3. AFINITOR [Suspect]
     Dosage: 5 MG, DAILY
     Route: 048
     Dates: start: 20120210, end: 20120223
  4. AFINITOR [Suspect]
     Dosage: 10 MG, DAILY
     Route: 048
     Dates: start: 20120224, end: 20120422
  5. SANDOSTATIN LAR [Concomitant]
     Indication: PANCREATIC NEUROENDOCRINE TUMOUR
     Dosage: 20 MG, UNK
     Route: 030
     Dates: start: 20110712
  6. HACHIAZULE [Concomitant]
     Indication: PROPHYLAXIS
     Dosage: 8 G, UNK
     Dates: start: 20120106, end: 20120202

REACTIONS (4)
  - White blood cell count increased [Unknown]
  - Neutrophil count decreased [Recovered/Resolved]
  - Pneumonitis [Recovering/Resolving]
  - Stomatitis [Recovering/Resolving]
